FAERS Safety Report 6289389-9 (Version None)
Quarter: 2009Q3

REPORT INFORMATION
  Report Type: 
  Country: None (occurrence: None)
  Receive Date: 20090730
  Receipt Date: 20090723
  Transmission Date: 20100115
  Serious: Yes (Other)
  Sender: FDA-Public Use
  Company Number: US-ELI_LILLY_AND_COMPANY-US200907005398

PATIENT
  Sex: Male

DRUGS (3)
  1. HUMALOG [Suspect]
     Dosage: UNK, UNK
     Dates: start: 20080101
  2. HUMALOG [Suspect]
  3. IRON [Concomitant]

REACTIONS (8)
  - ATRIAL FIBRILLATION [None]
  - CARDIOVERSION [None]
  - CATARACT [None]
  - DRUG INEFFECTIVE [None]
  - HYPERGLYCAEMIA [None]
  - MINERAL SUPPLEMENTATION [None]
  - NASOPHARYNGITIS [None]
  - STRESS [None]
